FAERS Safety Report 20790667 (Version 1)
Quarter: 2022Q2

REPORT INFORMATION
  Report Type: Spontaneous
  Country: None (occurrence: None)
  Receive Date: 20220505
  Receipt Date: 20220505
  Transmission Date: 20220721
  Serious: Yes (Life-Threatening, Hospitalization, Other)
  Sender: FDA-Public Use
  Company Number: None

PATIENT
  Age: 10 Month
  Sex: Female

DRUGS (1)
  1. OXYCODONE HYDROCHLORIDE [Suspect]
     Active Substance: OXYCODONE HYDROCHLORIDE

REACTIONS (17)
  - Brain oedema [Recovered/Resolved]
  - Hydrocephalus [Recovered/Resolved]
  - Brain herniation [Recovered/Resolved]
  - Respiratory failure [Recovered/Resolved]
  - Accidental overdose [Recovered/Resolved]
  - Bradypnoea [Recovered/Resolved]
  - Unresponsive to stimuli [Recovered/Resolved]
  - Oxygen saturation decreased [Recovered/Resolved]
  - Blood pressure decreased [Recovered/Resolved]
  - Pupil fixed [Recovered/Resolved]
  - Hypertonia [Recovered/Resolved]
  - Hyperreflexia [Recovered/Resolved]
  - Metabolic acidosis [Recovered/Resolved]
  - Respiratory acidosis [Recovered/Resolved]
  - Hypertransaminasaemia [Recovered/Resolved]
  - Leukocytosis [Recovered/Resolved]
  - Haemorrhagic infarction [Recovered/Resolved]
